FAERS Safety Report 9476507 (Version 3)
Quarter: 2013Q4

REPORT INFORMATION
  Report Type: Spontaneous
  Country: FR (occurrence: FR)
  Receive Date: 20130826
  Receipt Date: 20131018
  Transmission Date: 20140711
  Serious: Yes (Other)
  Sender: FDA-Public Use
  Company Number: FR-PFIZER INC-2013242196

PATIENT
  Age: 86 Year
  Sex: Male
  Weight: 80 kg

DRUGS (2)
  1. TAHOR [Suspect]
     Indication: ARTERIOSCLEROSIS
     Dosage: 1 DF, DAILY
     Route: 048
     Dates: start: 20110601, end: 20130910
  2. TAHOR [Suspect]
     Indication: CAROTID ARTERY STENOSIS

REACTIONS (6)
  - Myositis [Unknown]
  - Tendonitis [Unknown]
  - Arthralgia [Recovering/Resolving]
  - Muscle spasms [Not Recovered/Not Resolved]
  - Tendonitis [Recovering/Resolving]
  - Tendonitis [Recovering/Resolving]
